FAERS Safety Report 19640946 (Version 1)
Quarter: 2021Q3

REPORT INFORMATION
  Report Type: Spontaneous
  Country: US (occurrence: US)
  Receive Date: 20210730
  Receipt Date: 20210730
  Transmission Date: 20211014
  Serious: Yes (Hospitalization)
  Sender: FDA-Public Use
  Company Number: US-JNJFOC-20210752196

PATIENT
  Age: 80 Year
  Sex: Male
  Weight: 50.7 kg

DRUGS (17)
  1. AMANTADINE HYDROCHLORIDE. [Suspect]
     Active Substance: AMANTADINE HYDROCHLORIDE
     Route: 048
     Dates: start: 20210604, end: 20210609
  2. TAKECAB [Concomitant]
     Active Substance: VONOPRAZAN FUMARATE
     Dates: start: 20210402
  3. AMANTADINE HYDROCHLORIDE. [Suspect]
     Active Substance: AMANTADINE HYDROCHLORIDE
     Indication: DEMENTIA
     Route: 048
     Dates: start: 2018, end: 20210603
  4. BAKTAR [Concomitant]
     Active Substance: SULFAMETHOXAZOLE\TRIMETHOPRIM
     Dates: start: 20210402
  5. LOSARTAN POTASSIUM. [Suspect]
     Active Substance: LOSARTAN POTASSIUM
     Dosage: DOSE DECREASED
     Route: 048
     Dates: start: 2021
  6. NICERGOLINE [Suspect]
     Active Substance: NICERGOLINE
     Indication: ABULIA
     Route: 048
     Dates: start: 2018, end: 2021
  7. AMANTADINE HYDROCHLORIDE. [Suspect]
     Active Substance: AMANTADINE HYDROCHLORIDE
     Route: 048
     Dates: start: 20210610, end: 20210611
  8. NICERGOLINE [Suspect]
     Active Substance: NICERGOLINE
     Route: 048
     Dates: start: 2021
  9. RAZADYNE [Suspect]
     Active Substance: GALANTAMINE HYDROBROMIDE
     Indication: DEMENTIA ALZHEIMER^S TYPE
     Route: 048
     Dates: start: 2018, end: 2021
  10. MEMANTINE HYDROCHLORIDE. [Suspect]
     Active Substance: MEMANTINE HYDROCHLORIDE
     Indication: DEMENTIA ALZHEIMER^S TYPE
     Route: 048
     Dates: start: 2018, end: 2021
  11. LOSARTAN POTASSIUM. [Suspect]
     Active Substance: LOSARTAN POTASSIUM
     Indication: PRODUCT USED FOR UNKNOWN INDICATION
     Route: 048
     Dates: start: 2018, end: 2021
  12. MAGNESIUM OXIDE. [Concomitant]
     Active Substance: MAGNESIUM OXIDE
     Indication: NUTRITIONAL SUPPLEMENTATION
     Route: 065
  13. URIADEC [Concomitant]
     Active Substance: TOPIROXOSTAT
  14. RELVAR ELLIPTA [FLUTICASONE FUROATE;VILANTEROL TRIFENATATE] [Concomitant]
     Active Substance: FLUTICASONE FUROATE\VILANTEROL TRIFENATATE
  15. PREDONINE [Concomitant]
     Active Substance: PREDNISOLONE
     Dates: start: 20210402
  16. RAZADYNE [Suspect]
     Active Substance: GALANTAMINE HYDROBROMIDE
     Dosage: DOSE DECREASED
     Route: 048
     Dates: start: 2021
  17. MEMANTINE HYDROCHLORIDE. [Suspect]
     Active Substance: MEMANTINE HYDROCHLORIDE
     Route: 048
     Dates: start: 2021

REACTIONS (6)
  - Dehydration [Unknown]
  - Dyslalia [Recovered/Resolved]
  - Dysphagia [Recovering/Resolving]
  - Gait disturbance [Recovered/Resolved]
  - Renal disorder [Unknown]
  - Tremor [Recovered/Resolved]

NARRATIVE: CASE EVENT DATE: 202105
